FAERS Safety Report 7099314-9 (Version None)
Quarter: 2010Q4

REPORT INFORMATION
  Report Type: 
  Country: None (occurrence: None)
  Receive Date: 20101112
  Receipt Date: 20080625
  Transmission Date: 20110411
  Serious: No
  Sender: FDA-Public Use
  Company Number: US-KINGPHARMUSA00001-K200800753

PATIENT
  Age: 70 Year
  Sex: Female

DRUGS (5)
  1. LEVOXYL [Suspect]
     Dosage: 25 MCG, QD
     Route: 048
     Dates: start: 20070101
  2. MECLIZINE                          /00072801/ [Concomitant]
     Indication: DIZZINESS
  3. RANITIDINE [Concomitant]
     Indication: DYSPEPSIA
  4. ACETAZOLAMIDE [Concomitant]
  5. LOVASTATIN [Concomitant]

REACTIONS (1)
  - FEELING ABNORMAL [None]
